FAERS Safety Report 5573212-1 (Version None)
Quarter: 2007Q4

REPORT INFORMATION
  Report Type: 
  Country: None (occurrence: None)
  Receive Date: 20071220
  Receipt Date: 20071204
  Transmission Date: 20080405
  Serious: Yes (Hospitalization)
  Sender: FDA-Public Use
  Company Number: DSA_30993_2007

PATIENT
  Sex: Female

DRUGS (8)
  1. LORAZEPAM [Suspect]
     Indication: DRUG USE FOR UNKNOWN INDICATION
     Dosage: DR ORAL
     Route: 048
     Dates: start: 20071016, end: 20071027
  2. PIPERACILLIN SODIUM AND TAZOBACTAM SODIUM [Suspect]
     Indication: CELLULITIS
     Dosage: DF INTRAVENOUS (NOT OTHERWISE SPECIFIED)
     Route: 042
     Dates: start: 20071013, end: 20071028
  3. TRAMADOL HCL [Suspect]
     Indication: PAIN
     Dosage: DF ORAL
     Route: 048
     Dates: start: 20071014, end: 20071027
  4. CLINDAMYCIN PHOSPHATE [Suspect]
     Indication: CELLULITIS
     Dosage: DF INTRAVENOUS (NOT OTHERWISE SPECIFIED)
     Route: 042
     Dates: start: 20071013, end: 20071028
  5. LOVENOX [Concomitant]
  6. FORLAX [Concomitant]
  7. PENICILLIN G [Concomitant]
  8. GENTAMICIN [Concomitant]

REACTIONS (1)
  - RASH ERYTHEMATOUS [None]
